FAERS Safety Report 7056289-6 (Version None)
Quarter: 2010Q4

REPORT INFORMATION
  Report Type: 
  Country: None (occurrence: None)
  Receive Date: 20101018
  Receipt Date: 20101013
  Transmission Date: 20110411
  Serious: Yes (Hospitalization, Other)
  Sender: FDA-Public Use
  Company Number: IMP_05115_2010

PATIENT
  Age: 30 Year
  Sex: Male

DRUGS (2)
  1. BUPROPION HCL [Suspect]
     Indication: SMOKING CESSATION THERAPY
     Dosage: (150 MG QD ORAL)  ; (150 MG BID ORAL)
     Route: 048
  2. BUPROPION HCL [Suspect]
     Indication: SMOKING CESSATION THERAPY
     Dosage: (150 MG QD ORAL)  ; (150 MG BID ORAL)
     Route: 048

REACTIONS (1)
  - DRUG HYPERSENSITIVITY [None]
